FAERS Safety Report 7233563-1 (Version None)
Quarter: 2011Q1

REPORT INFORMATION
  Report Type: 
  Country: None (occurrence: None)
  Receive Date: 20110119
  Receipt Date: 20100521
  Transmission Date: 20110831
  Serious: Yes (Other)
  Sender: FDA-Public Use
  Company Number: US-TEVA-234194USA

PATIENT
  Sex: Female
  Weight: 68.1 kg

DRUGS (1)
  1. COPAXONE [Suspect]
     Indication: MULTIPLE SCLEROSIS
     Route: 058
     Dates: start: 20010101, end: 20020101

REACTIONS (3)
  - HEPATIC ENZYME INCREASED [None]
  - HEPATIC CIRRHOSIS [None]
  - CHEST PAIN [None]
